FAERS Safety Report 25567857 (Version 1)
Quarter: 2025Q3

REPORT INFORMATION
  Report Type: Spontaneous
  Country: US (occurrence: US)
  Receive Date: 20250716
  Receipt Date: 20250716
  Transmission Date: 20251020
  Serious: No
  Sender: BAUSCH AND LOMB
  Company Number: US-BAUSCHBL-2025BNL012209

PATIENT
  Age: 78 Year
  Sex: Male

DRUGS (2)
  1. TIMOLOL MALEATE [Suspect]
     Active Substance: TIMOLOL MALEATE
     Indication: Product used for unknown indication
     Route: 065
  2. LATANOPROST [Suspect]
     Active Substance: LATANOPROST
     Indication: Product used for unknown indication
     Route: 065

REACTIONS (6)
  - Burning sensation [Unknown]
  - Eye pain [Unknown]
  - Intraocular pressure decreased [Unknown]
  - Paraesthesia [Unknown]
  - Product label issue [Unknown]
  - Product use complaint [Unknown]
